FAERS Safety Report 8446995-0 (Version None)
Quarter: 2012Q2

REPORT INFORMATION
  Report Type: 
  Country: None (occurrence: None)
  Receive Date: 20120619
  Receipt Date: 20120607
  Transmission Date: 20120825
  Serious: Yes (Other)
  Sender: FDA-Public Use
  Company Number: US-SANOFI-AVENTIS-2012SA041000

PATIENT
  Sex: Female

DRUGS (3)
  1. LANTUS [Suspect]
     Dosage: 65 UNITS IN MORNING AND 15 UNITS IN EVENING
     Route: 058
     Dates: start: 20080101
  2. SOLOSTAR [Suspect]
     Dates: start: 20080101
  3. NOVOLOG [Suspect]

REACTIONS (14)
  - CONDITION AGGRAVATED [None]
  - ASTHENIA [None]
  - HERNIA [None]
  - ILL-DEFINED DISORDER [None]
  - BLOOD GLUCOSE INCREASED [None]
  - TREMOR [None]
  - CARDIAC DISORDER [None]
  - LIVER DISORDER [None]
  - CHRONIC OBSTRUCTIVE PULMONARY DISEASE [None]
  - COLD SWEAT [None]
  - RENAL DISORDER [None]
  - ANXIETY [None]
  - VOMITING [None]
  - ULCER [None]
